FAERS Safety Report 5815594-9 (Version None)
Quarter: 2008Q3

REPORT INFORMATION
  Report Type: 
  Country: None (occurrence: None)
  Receive Date: 20080718
  Receipt Date: 20080707
  Transmission Date: 20090109
  Serious: Yes (Other)
  Sender: FDA-Public Use
  Company Number: US-PFIZER INC-2005033100

PATIENT
  Sex: Female

DRUGS (5)
  1. PROVERA [Suspect]
     Indication: HORMONE REPLACEMENT THERAPY
     Dosage: TEXT:UNKNOWN-FREQ:UNKNOWN
     Route: 065
     Dates: start: 19861212, end: 19870529
  2. PROVERA [Suspect]
     Dates: start: 19890414, end: 19960601
  3. PREMARIN [Suspect]
     Indication: HORMONE REPLACEMENT THERAPY
     Dosage: TEXT:UNKNOWN-FREQ:UNKNOWN
     Route: 065
     Dates: start: 19860829, end: 19960601
  4. NORLUTATE [Suspect]
     Dates: start: 19860829, end: 19861212
  5. NORLUTATE [Suspect]
     Dates: start: 19870529, end: 19890414

REACTIONS (1)
  - BREAST CANCER FEMALE [None]
